FAERS Safety Report 25014779 (Version 2)
Quarter: 2025Q2

REPORT INFORMATION
  Report Type: Spontaneous
  Country: CA (occurrence: CA)
  Receive Date: 20250226
  Receipt Date: 20250401
  Transmission Date: 20250716
  Serious: Yes (Hospitalization, Disabling)
  Sender: TAKEDA
  Company Number: CA-TAKEDA-2025TUS020303

PATIENT
  Sex: Male
  Weight: 96 kg

DRUGS (5)
  1. LANSOPRAZOLE [Suspect]
     Active Substance: LANSOPRAZOLE
     Indication: Gastrooesophageal reflux disease
     Dosage: 30 MILLIGRAM, QD
  2. GABAPENTIN [Concomitant]
     Active Substance: GABAPENTIN
  3. INVOKANA [Concomitant]
     Active Substance: CANAGLIFLOZIN
  4. MAVIK [Concomitant]
     Active Substance: TRANDOLAPRIL
  5. TRESIBA [Concomitant]
     Active Substance: INSULIN DEGLUDEC

REACTIONS (1)
  - Ankle fracture [Unknown]

NARRATIVE: CASE EVENT DATE: 20230614
